FAERS Safety Report 21387821 (Version 1)
Quarter: 2022Q3

REPORT INFORMATION
  Report Type: Report from Study
  Country: US (occurrence: US)
  Receive Date: 20220928
  Receipt Date: 20220928
  Transmission Date: 20221027
  Serious: Yes (Other)
  Sender: FDA-Public Use
  Company Number: US-TAKEDA-US202002657

PATIENT
  Sex: Male
  Weight: 68 kg

DRUGS (11)
  1. VELAGLUCERASE ALFA [Suspect]
     Active Substance: VELAGLUCERASE ALFA
     Indication: Gaucher^s disease
     Dosage: 4000 INTERNATIONAL UNIT, 1X/2WKS
     Route: 042
     Dates: start: 20100527
  2. VELAGLUCERASE ALFA [Suspect]
     Active Substance: VELAGLUCERASE ALFA
     Indication: Lipidosis
     Dosage: 4000 INTERNATIONAL UNIT, Q4WEEKS
     Route: 042
     Dates: start: 20100527
  3. EPINEPHRINE [Concomitant]
     Active Substance: EPINEPHRINE
     Indication: Product used for unknown indication
  4. SODIUM CHLORIDE [Concomitant]
     Active Substance: SODIUM CHLORIDE
  5. STERILE WATER [Concomitant]
     Active Substance: WATER
     Indication: Product used for unknown indication
  6. SODIUM CHLORIDE [Concomitant]
     Active Substance: SODIUM CHLORIDE
     Indication: Product used for unknown indication
  7. HYDROCHLOROTHIAZIDE [Concomitant]
     Active Substance: HYDROCHLOROTHIAZIDE
  8. GABAPENTIN [Concomitant]
     Active Substance: GABAPENTIN
  9. VITAMINS [Concomitant]
     Active Substance: VITAMINS
  10. IRBESARTAN [Concomitant]
     Active Substance: IRBESARTAN
     Indication: Product used for unknown indication
  11. EPIPEN [Concomitant]
     Active Substance: EPINEPHRINE

REACTIONS (6)
  - Hypoxia [Unknown]
  - Hypertension [Not Recovered/Not Resolved]
  - Anxiety [Unknown]
  - Feeling abnormal [Unknown]
  - Therapy interrupted [Unknown]
  - Insurance issue [Unknown]
